FAERS Safety Report 18199476 (Version 2)
Quarter: 2020Q4

REPORT INFORMATION
  Report Type: Spontaneous
  Country: US (occurrence: US)
  Receive Date: 20200826
  Receipt Date: 20201012
  Transmission Date: 20210113
  Serious: No
  Sender: FDA-Public Use
  Company Number: US-TOLMAR, INC.-20US022478

PATIENT
  Age: 61 Year
  Sex: Male

DRUGS (6)
  1. ELIGARD [Suspect]
     Active Substance: LEUPROLIDE ACETATE
     Indication: PROSTATE CANCER METASTATIC
     Dosage: 7.5 MG, Q 1 MONTH
     Route: 058
     Dates: start: 20200810
  2. ELIGARD [Suspect]
     Active Substance: LEUPROLIDE ACETATE
     Dosage: 7.5 MG, Q 1 MONTH
     Route: 058
     Dates: start: 201912
  3. ELIGARD [Suspect]
     Active Substance: LEUPROLIDE ACETATE
     Dosage: 7.5 MG, Q 1 MONTH
     Route: 058
     Dates: start: 202007
  4. ELIGARD [Suspect]
     Active Substance: LEUPROLIDE ACETATE
     Dosage: 7.5 MG, Q 1 MONTH
     Route: 058
     Dates: start: 202001
  5. ELIGARD [Suspect]
     Active Substance: LEUPROLIDE ACETATE
     Dosage: 7.5 MG, Q 1 MONTH
     Route: 058
     Dates: start: 202003
  6. ELIGARD [Suspect]
     Active Substance: LEUPROLIDE ACETATE
     Dosage: 7.5 MG, Q 1 MONTH
     Route: 058
     Dates: start: 202006

REACTIONS (4)
  - Intercepted product preparation error [None]
  - Syringe issue [None]
  - Wrong technique in product usage process [None]
  - Inappropriate schedule of product administration [None]

NARRATIVE: CASE EVENT DATE: 20200810
